FAERS Safety Report 15278200 (Version 1)
Quarter: 2018Q3

REPORT INFORMATION
  Report Type: Spontaneous
  Country: CA (occurrence: CA)
  Receive Date: 20180814
  Receipt Date: 20180814
  Transmission Date: 20181010
  Serious: Yes (Other)
  Sender: FDA-Public Use
  Company Number: CA-ALLERGAN-1839689US

PATIENT
  Sex: Male

DRUGS (1)
  1. BRIMONIDINE [Suspect]
     Active Substance: BRIMONIDINE TARTRATE
     Indication: PREOPERATIVE CARE
     Route: 065

REACTIONS (3)
  - Drug ineffective for unapproved indication [Unknown]
  - Intraocular pressure increased [Unknown]
  - Off label use [Unknown]
